FAERS Safety Report 11182834 (Version 3)
Quarter: 2015Q3

REPORT INFORMATION
  Report Type: Report from Study
  Country: BR (occurrence: BR)
  Receive Date: 20150611
  Receipt Date: 20150701
  Transmission Date: 20151125
  Serious: Yes (Other)
  Sender: FDA-Public Use
  Company Number: PHHY2015BR067715

PATIENT
  Sex: Female
  Weight: 100 kg

DRUGS (10)
  1. SPIRONOLACTONE. [Concomitant]
     Active Substance: SPIRONOLACTONE
     Indication: CARDIAC DISORDER
     Dosage: 25 MG, QD
     Route: 048
  2. HYDROCHLOROTHIAZIDE. [Concomitant]
     Active Substance: HYDROCHLOROTHIAZIDE
     Indication: MICTURITION DISORDER
     Dosage: 25 MG, QD
     Route: 048
  3. LEVOTHYROXINE. [Concomitant]
     Active Substance: LEVOTHYROXINE
     Indication: THYROID DISORDER
     Dosage: 75 MG, QD
     Route: 048
  4. GLIFAGE [Concomitant]
     Active Substance: METFORMIN HYDROCHLORIDE
     Indication: DIABETES MELLITUS
     Dosage: 500 MG, QD
     Route: 048
  5. CATAFLAM [Suspect]
     Active Substance: DICLOFENAC POTASSIUM
     Indication: SPINAL FRACTURE
  6. OMEPRAZOLE. [Concomitant]
     Active Substance: OMEPRAZOLE
     Indication: PROPHYLAXIS
     Dosage: 40 MG, QD
     Route: 048
  7. SIMVASTATIN. [Concomitant]
     Active Substance: SIMVASTATIN
     Indication: BLOOD CHOLESTEROL INCREASED
     Dosage: 20 MG, QD
     Route: 048
  8. CARVEDILOL. [Concomitant]
     Active Substance: CARVEDILOL
     Indication: CARDIAC DISORDER
     Dosage: 4 DF, QD
     Route: 048
  9. CATAFLAM [Suspect]
     Active Substance: DICLOFENAC POTASSIUM
     Indication: SPINAL PAIN
  10. LOSARTAN. [Concomitant]
     Active Substance: LOSARTAN
     Indication: HYPERTENSION
     Dosage: 50 MG, QD
     Route: 065

REACTIONS (10)
  - Spinal pain [Not Recovered/Not Resolved]
  - Abasia [Not Recovered/Not Resolved]
  - Hypersensitivity [Unknown]
  - Spinal fracture [Not Recovered/Not Resolved]
  - Lumbar vertebral fracture [Recovered/Resolved]
  - Blood pressure abnormal [Recovered/Resolved]
  - Syncope [Unknown]
  - Back pain [Recovered/Resolved]
  - Urinary tract infection [Recovering/Resolving]
  - Fall [Not Recovered/Not Resolved]
